FAERS Safety Report 4283690-6 (Version None)
Quarter: 2004Q1

REPORT INFORMATION
  Report Type: 
  Country: None (occurrence: None)
  Receive Date: 20040115
  Receipt Date: 20030227
  Transmission Date: 20041129
  Serious: Yes (Death, Hospitalization)
  Sender: FDA-Public Use
  Company Number: NSADSS2003009405

PATIENT
  Age: 54 Year
  Sex: Female

DRUGS (4)
  1. DOXIL [Suspect]
     Indication: OVARIAN CANCER
     Dosage: 70 MG, INTRAVENOUS DRIP
     Route: 041
     Dates: start: 20021206, end: 20021206
  2. EPOGEN [Suspect]
     Indication: ANAEMIA
     Dosage: 40000 IU
     Dates: start: 20020101, end: 20021217
  3. KYTRIL [Concomitant]
  4. CARAFATE [Concomitant]

REACTIONS (2)
  - ANAEMIA [None]
  - CONDITION AGGRAVATED [None]
